FAERS Safety Report 5299922-1 (Version None)
Quarter: 2007Q2

REPORT INFORMATION
  Report Type: 
  Country: None (occurrence: None)
  Receive Date: 20070410
  Receipt Date: 20070330
  Transmission Date: 20071010
  Serious: Yes (Hospitalization)
  Sender: FDA-Public Use
  Company Number: B0460652A

PATIENT
  Age: 38 Year
  Sex: Female
  Weight: 41.9124 kg

DRUGS (6)
  1. FORTAZ [Suspect]
     Indication: PERITONITIS
     Dosage: 1 GRAM (S) INTRAPERITONEAL
     Route: 033
     Dates: start: 20070223, end: 20070301
  2. CEFOTIAM HYDROCHLORIDE [Concomitant]
  3. IMIDAPRIL HYDROCHLORIDE [Concomitant]
  4. NIFEDIPINE [Concomitant]
  5. ALLOPURINOL [Concomitant]
  6. CALCIUM CARBONATE [Concomitant]

REACTIONS (2)
  - CONVULSION [None]
  - HALLUCINATION [None]
